FAERS Safety Report 6807423-1 (Version None)
Quarter: 2010Q2

REPORT INFORMATION
  Report Type: 
  Country: None (occurrence: None)
  Receive Date: 20100629
  Receipt Date: 20081002
  Transmission Date: 20101027
  Serious: Yes (Other)
  Sender: FDA-Public Use
  Company Number: US-PFIZER INC-2008067179

PATIENT
  Sex: Female

DRUGS (7)
  1. ZYVOX [Suspect]
     Indication: PNEUMONIA
     Route: 042
     Dates: start: 20080403, end: 20080405
  2. CLINDAMYCIN PHOSPHATE [Suspect]
     Indication: PNEUMONIA
     Route: 042
  3. CARBAMAZEPINE [Suspect]
  4. OXCARBAZEPINE [Suspect]
  5. FLUCONAZOLE [Concomitant]
  6. DIAZEPAM [Concomitant]
     Route: 048
  7. IBUPROFEN [Concomitant]

REACTIONS (4)
  - IRRITABILITY [None]
  - PYREXIA [None]
  - SCREAMING [None]
  - SEROTONIN SYNDROME [None]
